FAERS Safety Report 8776142 (Version 1)
Quarter: 2012Q4

REPORT INFORMATION
  Report Type: 
  Country: FR (occurrence: FR)
  Receive Date: 20120910
  Receipt Date: 20120910
  Transmission Date: 20130627
  Serious: Yes (Hospitalization)
  Sender: FDA-Public Use
  Company Number: FR-NOVOPROD-359171

PATIENT
  Age: 63 Year
  Sex: Female

DRUGS (6)
  1. VICTOZA [Suspect]
     Indication: TYPE 2 DIABETES MELLITUS
     Dosage: UNK
     Dates: start: 20120601
  2. TAREG [Concomitant]
     Dosage: 80 mg, qd
     Route: 048
  3. CRESTOR [Concomitant]
     Dosage: 10 mg, qd
     Route: 048
  4. NITRIDERM [Concomitant]
     Dosage: 5 mg, qd
  5. DAFALGAN [Concomitant]
  6. METFORMIN [Concomitant]
     Dosage: 1700 mg, qd
     Route: 048

REACTIONS (5)
  - Disturbance in attention [Recovered/Resolved]
  - Confusional state [Recovered/Resolved]
  - Balance disorder [Recovered/Resolved]
  - Vomiting [Recovered/Resolved]
  - Headache [Recovered/Resolved]
